FAERS Safety Report 8117932-3 (Version None)
Quarter: 2012Q1

REPORT INFORMATION
  Report Type: 
  Country: None (occurrence: None)
  Receive Date: 20120207
  Receipt Date: 20120124
  Transmission Date: 20120608
  Serious: Yes (Hospitalization, Other)
  Sender: FDA-Public Use
  Company Number: VE-RANBAXY-2011RR-50740

PATIENT
  Age: 38 Year
  Sex: Male

DRUGS (6)
  1. CEFADROXIL [Suspect]
     Indication: ASTHENIA
     Dosage: UNK
     Route: 065
  2. CEFADROXIL [Suspect]
     Indication: DYSPHAGIA
  3. IBUPROFEN [Suspect]
     Indication: ASTHENIA
     Dosage: UNK
     Route: 065
  4. IBUPROFEN [Suspect]
     Indication: DYSPHAGIA
  5. CEFADROXIL [Suspect]
     Indication: ODYNOPHAGIA
  6. IBUPROFEN [Suspect]
     Indication: ODYNOPHAGIA

REACTIONS (1)
  - TOXIC EPIDERMAL NECROLYSIS [None]
